FAERS Safety Report 7653915-5 (Version None)
Quarter: 2011Q3

REPORT INFORMATION
  Report Type: 
  Country: None (occurrence: None)
  Receive Date: 20110803
  Receipt Date: 20110727
  Transmission Date: 20111222
  Serious: Yes (Other)
  Sender: FDA-Public Use
  Company Number: US-ELI_LILLY_AND_COMPANY-US201007007862

PATIENT
  Sex: Female
  Weight: 89.796 kg

DRUGS (11)
  1. SINGULAIR [Concomitant]
     Route: 048
  2. ASPIRIN [Concomitant]
  3. BYETTA [Suspect]
     Indication: DIABETES MELLITUS
     Dosage: UNK
     Dates: start: 20061001, end: 20090101
  4. JANUVIA [Concomitant]
     Route: 048
  5. LANTUS [Concomitant]
     Route: 058
  6. ENALAPRIL MALEATE [Concomitant]
     Route: 048
  7. METFORMIN HCL [Concomitant]
     Route: 048
  8. PREVACID [Concomitant]
     Route: 048
  9. VYTORIN [Concomitant]
     Route: 048
  10. TRICOR [Concomitant]
     Route: 048
  11. EFFEXOR XR [Concomitant]
     Dosage: 10 UG, UNK

REACTIONS (5)
  - RENAL FAILURE [None]
  - GASTROINTESTINAL DISORDER [None]
  - PANCREATITIS [None]
  - DEPRESSION [None]
  - OFF LABEL USE [None]
